FAERS Safety Report 5050488-0 (Version None)
Quarter: 2006Q3

REPORT INFORMATION
  Report Type: 
  Country: None (occurrence: None)
  Receive Date: 20060707
  Receipt Date: 20060621
  Transmission Date: 20061208
  Serious: Yes (Other)
  Sender: FDA-Public Use
  Company Number: 111199ISR

PATIENT
  Age: 48 Year
  Sex: Female

DRUGS (2)
  1. LAMOTRIGINE [Suspect]
     Indication: EPILEPSY
     Dosage: 175 MILLIGRAM ORAL
     Route: 048
     Dates: start: 20060309, end: 20060621
  2. VALPROATE SODIUM [Concomitant]

REACTIONS (1)
  - PERICARDIAL EFFUSION [None]
